FAERS Safety Report 24053130 (Version 2)
Quarter: 2024Q4

REPORT INFORMATION
  Report Type: Report from Study
  Country: ES (occurrence: ES)
  Receive Date: 20240705
  Receipt Date: 20241112
  Transmission Date: 20250115
  Serious: Yes (Other)
  Sender: ROCHE
  Company Number: ES-ROCHE-10000007071

PATIENT

DRUGS (1)
  1. TOCILIZUMAB [Suspect]
     Active Substance: TOCILIZUMAB
     Indication: Giant cell arteritis
     Route: 065

REACTIONS (22)
  - Osteomyelitis [Unknown]
  - Off label use [Unknown]
  - Sepsis [Unknown]
  - Neutropenia [Unknown]
  - Pneumonia [Unknown]
  - Respiratory tract infection [Unknown]
  - Hypertransaminasaemia [Unknown]
  - Tooth infection [Unknown]
  - Thrombocytopenia [Unknown]
  - Infusion related reaction [Unknown]
  - Cellulitis [Unknown]
  - Skin reaction [Unknown]
  - Cytomegalovirus infection [Unknown]
  - Herpes zoster [Unknown]
  - Candida infection [Unknown]
  - Rectal haemorrhage [Unknown]
  - Palpable purpura [Unknown]
  - Urinary tract infection [Unknown]
  - Interstitial lung disease [Unknown]
  - Paraesthesia [Unknown]
  - Oedema peripheral [Unknown]
  - Skin lesion [Unknown]
